FAERS Safety Report 13850751 (Version 2)
Quarter: 2019Q1

REPORT INFORMATION
  Report Type: Report from Study
  Country: US (occurrence: US)
  Receive Date: 20170809
  Receipt Date: 20190123
  Transmission Date: 20190417
  Serious: Yes (Other)
  Sender: FDA-Public Use
  Company Number: US-AMGEN-USASL2017117596

PATIENT
  Age: 63 Year
  Sex: Female

DRUGS (1)
  1. REPATHA [Suspect]
     Active Substance: EVOLOCUMAB
     Indication: BLOOD CHOLESTEROL INCREASED
     Dosage: 140 MG, Q2WK
     Route: 065
     Dates: start: 201703

REACTIONS (4)
  - Skin exfoliation [Unknown]
  - Sleep disorder due to general medical condition, insomnia type [Unknown]
  - Urticaria [Unknown]
  - Skin fissures [Unknown]

NARRATIVE: CASE EVENT DATE: 201707
